FAERS Safety Report 4736891-4 (Version None)
Quarter: 2005Q3

REPORT INFORMATION
  Report Type: 
  Country: None (occurrence: None)
  Receive Date: 20050808
  Receipt Date: 20050726
  Transmission Date: 20060218
  Serious: Yes (Hospitalization)
  Sender: FDA-Public Use
  Company Number: FR-GLAXOSMITHKLINE-B0389065A

PATIENT
  Sex: Male

DRUGS (4)
  1. DEROXAT [Suspect]
  2. XANAX [Suspect]
  3. TOBACCO [Concomitant]
  4. HASHISH [Concomitant]

REACTIONS (10)
  - DRUG EXPOSURE DURING PREGNANCY [None]
  - DRUG WITHDRAWAL SYNDROME NEONATAL [None]
  - FEEDING DISORDER NEONATAL [None]
  - HYPERBILIRUBINAEMIA [None]
  - HYPERTONIA [None]
  - HYPOTONIA [None]
  - INSOMNIA [None]
  - POOR WEIGHT GAIN NEONATAL [None]
  - TENSION [None]
  - VOMITING [None]
